FAERS Safety Report 5737598-7 (Version None)
Quarter: 2008Q2

REPORT INFORMATION
  Report Type: 
  Country: None (occurrence: None)
  Receive Date: 20080514
  Receipt Date: 20080501
  Transmission Date: 20081010
  Serious: Yes (Other)
  Sender: FDA-Public Use
  Company Number: US-BAYER-200811559BCC

PATIENT
  Age: 63 Year
  Sex: Female
  Weight: 59 kg

DRUGS (7)
  1. ASPIRIN [Suspect]
     Indication: CORONARY ARTERY DISEASE
     Dosage: TOTAL DAILY DOSE: 81 MG  UNIT DOSE: 81 MG
     Route: 048
     Dates: start: 20050101
  2. CITRACAL CALCIUM [Suspect]
     Indication: VITAMIN SUPPLEMENTATION
  3. DIOVAN [Concomitant]
  4. TOPROL-XL [Concomitant]
  5. VYTORIN [Concomitant]
  6. NITROGLYCERIN [Concomitant]
  7. COQTEN-GNC [Concomitant]

REACTIONS (2)
  - GASTRITIS [None]
  - OESOPHAGEAL ULCER [None]
